FAERS Safety Report 17149955 (Version 1)
Quarter: 2019Q4

REPORT INFORMATION
  Report Type: Spontaneous
  Country: US (occurrence: US)
  Receive Date: 20191213
  Receipt Date: 20191213
  Transmission Date: 20200122
  Serious: No
  Sender: FDA-Public Use
  Company Number: US-TEVA-2019-US-1152203

PATIENT
  Age: 73 Year
  Sex: Female

DRUGS (1)
  1. COPAXONE [Suspect]
     Active Substance: GLATIRAMER ACETATE
     Dosage: FORM STRENGTH: UNKNOWN
     Route: 065

REACTIONS (5)
  - Contusion [Unknown]
  - Injection site pruritus [Unknown]
  - Fall [Unknown]
  - Injection site mass [Unknown]
  - Lymphoedema [Unknown]
